FAERS Safety Report 5623248-7 (Version None)
Quarter: 2008Q1

REPORT INFORMATION
  Report Type: 
  Country: None (occurrence: None)
  Receive Date: 20080207
  Receipt Date: 20080128
  Transmission Date: 20080703
  Serious: Yes (Other)
  Sender: FDA-Public Use
  Company Number: 231020J08USA

PATIENT
  Age: 53 Year
  Sex: Female

DRUGS (4)
  1. REBIF [Suspect]
     Indication: MULTIPLE SCLEROSIS
     Dates: start: 20070801
  2. PROVIGIL [Concomitant]
  3. RELAFEN [Concomitant]
  4. LEXAPRO [Concomitant]

REACTIONS (4)
  - CATARACT [None]
  - CONDITION AGGRAVATED [None]
  - MACULAR DEGENERATION [None]
  - UVEITIS [None]
